FAERS Safety Report 19007534 (Version 3)
Quarter: 2021Q3

REPORT INFORMATION
  Report Type: Report from Study
  Country: None (occurrence: US)
  Receive Date: 20210315
  Receipt Date: 20210707
  Transmission Date: 20211014
  Serious: Yes (Other)
  Sender: FDA-Public Use
  Company Number: US-ABBVIE-21K-163-3758911-00

PATIENT
  Age: 52 Year
  Sex: Female
  Weight: 47.22 kg

DRUGS (4)
  1. ALENDRONATE SODIUM. [Concomitant]
     Active Substance: ALENDRONATE SODIUM
     Indication: PRODUCT USED FOR UNKNOWN INDICATION
     Dosage: ONLY TWO TIMES THEN DISCOUNTINUED
  2. RINVOQ [Suspect]
     Active Substance: UPADACITINIB
     Route: 048
  3. RINVOQ [Suspect]
     Active Substance: UPADACITINIB
     Route: 048
     Dates: start: 20210106, end: 20210416
  4. RINVOQ [Suspect]
     Active Substance: UPADACITINIB
     Indication: RHEUMATOID ARTHRITIS
     Route: 048
     Dates: start: 20201219

REACTIONS (17)
  - Urinary tract infection [Not Recovered/Not Resolved]
  - Cough [Not Recovered/Not Resolved]
  - Urethritis noninfective [Not Recovered/Not Resolved]
  - Micturition urgency [Unknown]
  - Dyspnoea [Unknown]
  - Fatigue [Unknown]
  - Red blood cell count decreased [Not Recovered/Not Resolved]
  - Illness [Not Recovered/Not Resolved]
  - Memory impairment [Unknown]
  - Oropharyngeal pain [Not Recovered/Not Resolved]
  - Blindness [Not Recovered/Not Resolved]
  - Fatigue [Not Recovered/Not Resolved]
  - Drug ineffective [Unknown]
  - Infection [Unknown]
  - Deafness [Not Recovered/Not Resolved]
  - Dysuria [Unknown]
  - Constipation [Unknown]

NARRATIVE: CASE EVENT DATE: 2021
